FAERS Safety Report 5948278-7 (Version None)
Quarter: 2008Q4

REPORT INFORMATION
  Report Type: 
  Country: None (occurrence: None)
  Receive Date: 20081111
  Receipt Date: 20081104
  Transmission Date: 20090506
  Serious: Yes (Death)
  Sender: FDA-Public Use
  Company Number: US-ELI_LILLY_AND_COMPANY-US200811000793

PATIENT
  Sex: Male

DRUGS (1)
  1. HUMALOG [Suspect]

REACTIONS (1)
  - DEATH [None]
